FAERS Safety Report 8393887-1 (Version None)
Quarter: 2012Q2

REPORT INFORMATION
  Report Type: 
  Country: None (occurrence: None)
  Receive Date: 20120516
  Receipt Date: 20120508
  Transmission Date: 20120825
  Serious: Yes (Disabling)
  Sender: FDA-Public Use
  Company Number: 2012SP002108

PATIENT
  Age: 68 Year
  Sex: Male
  Weight: 81.65 kg

DRUGS (7)
  1. SIMVASTATIN [Concomitant]
  2. TIMOLOL MALEATE [Concomitant]
  3. CITALOPRAM [Concomitant]
  4. LOCERYL /01202402/ [Concomitant]
  5. MIRTAZAPINE [Suspect]
     Indication: ANXIETY
     Dosage: 15 MG;QD;
     Dates: start: 20111230, end: 20111231
  6. MIRTAZAPINE [Suspect]
     Indication: DEPRESSION
     Dosage: 15 MG;QD;
     Dates: start: 20111230, end: 20111231
  7. ASACOL [Concomitant]

REACTIONS (6)
  - DIZZINESS [None]
  - MUSCLE TWITCHING [None]
  - HEADACHE [None]
  - NOCTURIA [None]
  - MICTURITION URGENCY [None]
  - URINARY TRACT DISORDER [None]
